FAERS Safety Report 4325484-9 (Version None)
Quarter: 2004Q1

REPORT INFORMATION
  Report Type: 
  Country: None (occurrence: None)
  Receive Date: 20040324
  Receipt Date: 20040312
  Transmission Date: 20041129
  Serious: Yes (Hospitalization)
  Sender: FDA-Public Use
  Company Number: KDL068773

PATIENT
  Age: 46 Year
  Sex: Female

DRUGS (1)
  1. SENSIPAR [Suspect]
     Indication: HYPERPARATHYROIDISM SECONDARY
     Dosage: 60 MG, 1 IN 1 DAYS, PO
     Route: 048
     Dates: start: 20031023

REACTIONS (6)
  - BRONCHITIS ACUTE [None]
  - GASTROENTERITIS [None]
  - GASTROINTESTINAL CANDIDIASIS [None]
  - HEADACHE [None]
  - URINARY TRACT INFECTION [None]
  - UROGENITAL TRICHOMONIASIS [None]
